FAERS Safety Report 17389076 (Version 7)
Quarter: 2021Q1

REPORT INFORMATION
  Report Type: Report from Study
  Country: US (occurrence: US)
  Receive Date: 20200206
  Receipt Date: 20210309
  Transmission Date: 20210419
  Serious: Yes (Hospitalization)
  Sender: FDA-Public Use
  Company Number: US-DSJP-DSU-2019-130820

PATIENT
  Age: 51 Year
  Sex: Female
  Weight: 94.5 kg

DRUGS (46)
  1. TRASTUZUMAB DERUXTECAN. [Suspect]
     Active Substance: TRASTUZUMAB DERUXTECAN
     Dosage: 3.2 MG/KG, ONCE EVERY 3 WK
     Route: 042
     Dates: start: 20191001, end: 20191001
  2. TRASTUZUMAB DERUXTECAN. [Suspect]
     Active Substance: TRASTUZUMAB DERUXTECAN
     Dosage: 3.2 MG/KG, ONCE EVERY 3 WK
     Route: 042
     Dates: start: 20200817, end: 20200817
  3. TRASTUZUMAB DERUXTECAN. [Suspect]
     Active Substance: TRASTUZUMAB DERUXTECAN
     Dosage: 3.2 MG/KG, ONCE EVERY 3 WK
     Route: 042
     Dates: start: 20201130, end: 20201130
  4. TRASTUZUMAB DERUXTECAN. [Suspect]
     Active Substance: TRASTUZUMAB DERUXTECAN
     Dosage: 3.2 MG/KG, ONCE EVERY 3 WK
     Route: 042
     Dates: start: 20201222, end: 20201222
  5. TRASTUZUMAB DERUXTECAN. [Suspect]
     Active Substance: TRASTUZUMAB DERUXTECAN
     Dosage: 3.2 MG/KG, ONCE EVERY 3 WK
     Dates: start: 20200908, end: 20200908
  6. DULOXETINE. [Concomitant]
     Active Substance: DULOXETINE
     Indication: AFFECTIVE DISORDER
  7. INSULIN REGULAR                    /01223401/ [Concomitant]
     Indication: HYPERGLYCAEMIA
  8. LEVOTHYROXINE                      /00068002/ [Concomitant]
     Active Substance: LEVOTHYROXINE
     Indication: HYPOTHYROIDISM
     Dosage: 100 UG, QD
     Route: 048
     Dates: start: 20120724
  9. TRASTUZUMAB DERUXTECAN. [Suspect]
     Active Substance: TRASTUZUMAB DERUXTECAN
     Dosage: 3.2 MG/KG, ONCE EVERY 3 WK
     Route: 042
     Dates: start: 20200721, end: 20200721
  10. TRASTUZUMAB DERUXTECAN. [Suspect]
     Active Substance: TRASTUZUMAB DERUXTECAN
     Dosage: 3.2 MG/KG, ONCE EVERY 3 WK
     Route: 042
     Dates: start: 20201110, end: 20201110
  11. LIDOCAINE. [Concomitant]
     Active Substance: LIDOCAINE
     Indication: PAIN
     Dosage: 1 PATCH, QD
     Route: 062
     Dates: start: 20190725
  12. INSULIN GLARGINE [Concomitant]
     Active Substance: INSULIN GLARGINE
     Indication: HYPERGLYCAEMIA
     Dosage: 10 UNITS, QD
     Route: 058
     Dates: start: 20190724, end: 20190813
  13. METOPROLOL SUCCINATE. [Concomitant]
     Active Substance: METOPROLOL SUCCINATE
     Indication: HYPERTENSION
     Dosage: 50 MG, QD
     Route: 048
     Dates: start: 20180205
  14. SODIUM CHLORIDE. [Concomitant]
     Active Substance: SODIUM CHLORIDE
     Indication: HOSPITALISATION
     Dosage: 2000 ML, SINGLE
     Route: 042
     Dates: start: 20190722, end: 20190722
  15. LIDOCAINE PRILOCAINE BIOGARAN [Concomitant]
     Indication: PREMEDICATION
     Dosage: 2.5 APPLICATION, PRN
     Route: 061
     Dates: start: 20190722, end: 20190725
  16. TRASTUZUMAB DERUXTECAN. [Suspect]
     Active Substance: TRASTUZUMAB DERUXTECAN
     Dosage: 3.2 MG/KG, ONCE EVERY 3 WK
     Route: 042
     Dates: start: 20191203, end: 20191203
  17. TRASTUZUMAB DERUXTECAN. [Suspect]
     Active Substance: TRASTUZUMAB DERUXTECAN
     Dosage: 3.2 MG/KG, ONCE EVERY 3 WK
     Route: 042
     Dates: start: 20191224, end: 20191224
  18. ASPIRIN                            /00002701/ [Concomitant]
     Active Substance: ASPIRIN
     Indication: ANGINA PECTORIS
     Dosage: 81 MG, QD
     Route: 048
     Dates: start: 20190702, end: 20190813
  19. POLYETHYLENE GLYCOL [Concomitant]
     Active Substance: POLYETHYLENE GLYCOLS
     Indication: CONSTIPATION
     Dosage: 17000 MG, PRN
     Route: 048
     Dates: start: 201907
  20. NITROGLYCERIN. [Concomitant]
     Active Substance: NITROGLYCERIN
     Indication: DYSPNOEA
     Dosage: 400 UG, AS NEEDED(ORAL SPRAY)
     Route: 050
     Dates: start: 20180129
  21. TRASTUZUMAB DERUXTECAN. [Suspect]
     Active Substance: TRASTUZUMAB DERUXTECAN
     Dosage: 3.2 MG/KG, ONCE EVERY 3 WK
     Route: 042
     Dates: start: 20210111, end: 20210111
  22. MIRTAZAPINE. [Concomitant]
     Active Substance: MIRTAZAPINE
     Indication: DEPRESSION
     Dosage: 15 MG, QD
     Route: 048
     Dates: start: 20190604, end: 20191031
  23. TRASTUZUMAB DERUXTECAN. [Suspect]
     Active Substance: TRASTUZUMAB DERUXTECAN
     Dosage: 4.4 MG/KG, ONCE EVERY 3 WK
     Route: 042
     Dates: start: 20190909, end: 20190909
  24. TRASTUZUMAB DERUXTECAN. [Suspect]
     Active Substance: TRASTUZUMAB DERUXTECAN
     Dosage: 3.2 MG/KG, ONCE EVERY 3 WK
     Route: 042
     Dates: start: 20200204, end: 20200204
  25. TRASTUZUMAB DERUXTECAN. [Suspect]
     Active Substance: TRASTUZUMAB DERUXTECAN
     Dosage: 3.2 MG/KG, ONCE EVERY 3 WK
     Route: 042
     Dates: start: 20200225, end: 20200225
  26. TRASTUZUMAB DERUXTECAN. [Suspect]
     Active Substance: TRASTUZUMAB DERUXTECAN
     Dosage: 3.2 MG/KG, ONCE EVERY 3 WK
     Route: 042
     Dates: start: 20200407, end: 20200407
  27. TRASTUZUMAB DERUXTECAN. [Suspect]
     Active Substance: TRASTUZUMAB DERUXTECAN
     Dosage: 3.2 MG/KG, ONCE EVERY 3 WK
     Route: 042
     Dates: start: 20200428, end: 20200428
  28. LEXAPRO [Concomitant]
     Active Substance: ESCITALOPRAM OXALATE
     Indication: DEPRESSION
     Dosage: 20 MG, QD
     Route: 048
     Dates: start: 20151210, end: 20191113
  29. SENNA                              /00142201/ [Concomitant]
     Active Substance: SENNA LEAF
     Indication: CONSTIPATION
     Dosage: 8.6 MG, QD
     Route: 048
     Dates: start: 20190725
  30. ONDANSETRON [Concomitant]
     Active Substance: ONDANSETRON
     Indication: PROPHYLACTIC CHEMOTHERAPY
     Dosage: 16 MG, ONCE EVERY 3 WK(Q3W)
     Route: 048
     Dates: start: 20190729
  31. TRASTUZUMAB DERUXTECAN. [Suspect]
     Active Substance: TRASTUZUMAB DERUXTECAN
     Dosage: 3.2 MG/KG, ONCE EVERY 3 WK
     Route: 042
     Dates: start: 20200317, end: 20200317
  32. INSULIN REGULAR                    /01223401/ [Concomitant]
     Indication: DIABETES MELLITUS
     Dosage: 10 UNITS, SINGLE
     Route: 058
     Dates: start: 20190722, end: 20190722
  33. ONDANSETRON [Concomitant]
     Active Substance: ONDANSETRON
     Indication: NAUSEA
     Dosage: 8 MG, AS NEEDED
     Route: 048
     Dates: start: 20190730
  34. TRASTUZUMAB DERUXTECAN. [Suspect]
     Active Substance: TRASTUZUMAB DERUXTECAN
     Dosage: 3.2 MG/KG, ONCE EVERY 3 WK
     Route: 042
     Dates: start: 20191022, end: 20191022
  35. TRASTUZUMAB DERUXTECAN. [Suspect]
     Active Substance: TRASTUZUMAB DERUXTECAN
     Dosage: 3.2 MG/KG, ONCE EVERY 3 WK
     Route: 042
     Dates: start: 20191112, end: 20191112
  36. TRASTUZUMAB DERUXTECAN. [Suspect]
     Active Substance: TRASTUZUMAB DERUXTECAN
     Dosage: 3.2 MG/KG, ONCE EVERY 3 WK
     Route: 042
     Dates: start: 20200518, end: 20200518
  37. TRASTUZUMAB DERUXTECAN. [Suspect]
     Active Substance: TRASTUZUMAB DERUXTECAN
     Dosage: 3.2 MG/KG, ONCE EVERY 3 WK
     Route: 042
     Dates: start: 20200609, end: 20200609
  38. TRASTUZUMAB DERUXTECAN. [Suspect]
     Active Substance: TRASTUZUMAB DERUXTECAN
     Dosage: 3.2 MG/KG, ONCE EVERY 3 WK
     Route: 042
     Dates: start: 20201020, end: 20201020
  39. CYMBALTA [Concomitant]
     Active Substance: DULOXETINE HYDROCHLORIDE
     Indication: DEPRESSION
     Dosage: 30 MG, QD
     Route: 048
     Dates: start: 20180522
  40. TRASTUZUMAB DERUXTECAN. [Suspect]
     Active Substance: TRASTUZUMAB DERUXTECAN
     Indication: BREAST CANCER METASTATIC
     Dosage: 5.4 MG/KG, ONCE EVERY 3 WK
     Route: 042
     Dates: start: 20190729, end: 20190729
  41. TRASTUZUMAB DERUXTECAN. [Suspect]
     Active Substance: TRASTUZUMAB DERUXTECAN
     Dosage: 3.2 MG/KG, ONCE EVERY 3 WK
     Route: 042
     Dates: start: 20200113, end: 20200113
  42. TRASTUZUMAB DERUXTECAN. [Suspect]
     Active Substance: TRASTUZUMAB DERUXTECAN
     Dosage: 3.2 MG/KG, ONCE EVERY 3 WK
     Route: 042
     Dates: start: 20200630, end: 20200630
  43. TRASTUZUMAB DERUXTECAN. [Suspect]
     Active Substance: TRASTUZUMAB DERUXTECAN
     Dosage: 3.2 MG/KG, ONCE EVERY 3 WK
     Route: 042
     Dates: start: 20200929, end: 20200929
  44. DULOXETINE. [Concomitant]
     Active Substance: DULOXETINE
     Indication: PAIN
     Dosage: 60 MG, QD
     Route: 048
     Dates: start: 20190422
  45. GABAPENTIN. [Concomitant]
     Active Substance: GABAPENTIN
     Indication: PAIN
     Dosage: 1500 MG, QD
     Route: 048
     Dates: start: 20190725, end: 20190813
  46. GABAPENTIN. [Concomitant]
     Active Substance: GABAPENTIN
     Dosage: 1200 MG, QD
     Route: 048
     Dates: start: 20190507, end: 20190724

REACTIONS (2)
  - Hyponatraemia [Recovered/Resolved]
  - Hypotension [Recovered/Resolved]

NARRATIVE: CASE EVENT DATE: 20190805
